FAERS Safety Report 15130682 (Version 1)
Quarter: 2018Q3

REPORT INFORMATION
  Report Type: Spontaneous
  Country: IE (occurrence: IE)
  Receive Date: 20180711
  Receipt Date: 20180711
  Transmission Date: 20181010
  Serious: Yes (Death)
  Sender: FDA-Public Use
  Company Number: IE-PFIZER INC-2018277375

PATIENT
  Age: 36 Year
  Sex: Male

DRUGS (4)
  1. KWELLS [Concomitant]
     Active Substance: SCOPOLAMINE HYDROBROMIDE
     Dosage: 300 UG, AT NIGHT
  2. SERTRALINE HCL [Suspect]
     Active Substance: SERTRALINE HYDROCHLORIDE
     Dosage: 200 MG, IN THE MORNING
     Route: 048
  3. DENZAPINE [Suspect]
     Active Substance: CLOZAPINE
     Indication: SCHIZOPHRENIA
     Dosage: 650 MG, DAILY (150 MG IN THE MORNING, 500 MG AT NIGHT)
     Route: 048
     Dates: start: 201407
  4. EPILIM [Concomitant]
     Active Substance: VALPROATE SODIUM
     Dosage: 800 MG, AT NIGHT
     Route: 048

REACTIONS (1)
  - Toxicity to various agents [Fatal]

NARRATIVE: CASE EVENT DATE: 20160225
